FAERS Safety Report 23627871 (Version 3)
Quarter: 2024Q2

REPORT INFORMATION
  Report Type: Spontaneous
  Country: JP (occurrence: JP)
  Receive Date: 20240313
  Receipt Date: 20240501
  Transmission Date: 20240715
  Serious: Yes (Other)
  Sender: FDA-Public Use
  Company Number: JP-PFIZER INC-202400062504

PATIENT
  Age: 66 Year
  Sex: Male

DRUGS (2)
  1. TOFACITINIB CITRATE [Suspect]
     Active Substance: TOFACITINIB CITRATE
     Indication: Interstitial lung disease
     Dosage: UNK
  2. TOFACITINIB CITRATE [Suspect]
     Active Substance: TOFACITINIB CITRATE
     Indication: Dermatomyositis

REACTIONS (3)
  - Liver injury [Unknown]
  - Cytomegalovirus infection reactivation [Unknown]
  - Off label use [Unknown]
